FAERS Safety Report 20819895 (Version 30)
Quarter: 2024Q1

REPORT INFORMATION
  Report Type: Report from Study
  Country: CL (occurrence: CL)
  Receive Date: 20220512
  Receipt Date: 20240222
  Transmission Date: 20240409
  Serious: Yes (Life-Threatening, Hospitalization, Other)
  Sender: FDA-Public Use
  Company Number: CL-NOVARTISPH-NVSC2021CL308393

PATIENT
  Age: 66 Year
  Sex: Female

DRUGS (16)
  1. KISQALI [Suspect]
     Active Substance: RIBOCICLIB
     Indication: Breast cancer
     Dosage: 600 MG, QD
     Route: 048
     Dates: start: 20180712
  2. KISQALI [Suspect]
     Active Substance: RIBOCICLIB
     Dosage: 600 MG, QD
     Route: 048
  3. KISQALI [Suspect]
     Active Substance: RIBOCICLIB
     Dosage: 600 MG, QD
     Route: 048
     Dates: start: 20180712
  4. KISQALI [Suspect]
     Active Substance: RIBOCICLIB
     Dosage: 600 MG, QD
     Route: 048
     Dates: start: 20180712
  5. KISQALI [Suspect]
     Active Substance: RIBOCICLIB
     Dosage: 600 MG, QD
     Route: 048
     Dates: start: 20180712
  6. KISQALI [Suspect]
     Active Substance: RIBOCICLIB
     Dosage: 600 MG, QD
     Route: 048
     Dates: start: 20180712
  7. KISQALI [Suspect]
     Active Substance: RIBOCICLIB
     Dosage: 600 MG, QD
     Route: 048
     Dates: start: 20180712
  8. KISQALI [Suspect]
     Active Substance: RIBOCICLIB
     Dosage: 600 MG, QD
     Route: 048
     Dates: start: 20180712
  9. KISQALI [Suspect]
     Active Substance: RIBOCICLIB
     Dosage: 600 MG, QD
     Route: 048
     Dates: start: 20180712
  10. KISQALI [Suspect]
     Active Substance: RIBOCICLIB
     Dosage: 600 MG
     Route: 065
     Dates: start: 20230504
  11. KISQALI [Suspect]
     Active Substance: RIBOCICLIB
     Dosage: 600 MG
     Route: 065
     Dates: start: 20230701
  12. METFORMIN [Concomitant]
     Active Substance: METFORMIN HYDROCHLORIDE
     Indication: Product used for unknown indication
     Dosage: UNK (850)
     Route: 065
  13. CITALOPRAM [Concomitant]
     Active Substance: CITALOPRAM HYDROBROMIDE
     Indication: Product used for unknown indication
     Dosage: UNK
     Route: 065
  14. LOPERAMIDE [Concomitant]
     Active Substance: LOPERAMIDE
     Indication: Product used for unknown indication
     Dosage: UNK
     Route: 065
  15. CALCIUM [Concomitant]
     Active Substance: CALCIUM
     Indication: Product used for unknown indication
     Dosage: UNK
     Route: 065
  16. INSULIN NOS [Concomitant]
     Active Substance: INSULIN NOS
     Indication: Product used for unknown indication
     Dosage: UNK
     Route: 065

REACTIONS (68)
  - Malaise [Unknown]
  - Hypertensive crisis [Recovering/Resolving]
  - Neoplasm malignant [Unknown]
  - Astigmatism [Unknown]
  - Hyperthyroidism [Unknown]
  - Epilepsy [Unknown]
  - Asphyxia [Unknown]
  - Eyelid infection [Recovered/Resolved]
  - Haematocrit increased [Unknown]
  - Mean cell volume increased [Unknown]
  - Laziness [Unknown]
  - Anisocytosis [Unknown]
  - Red blood cell sedimentation rate increased [Unknown]
  - Polychromasia [Unknown]
  - Elliptocytosis [Unknown]
  - White blood cell count increased [Unknown]
  - Asthma [Recovering/Resolving]
  - Memory impairment [Unknown]
  - Visual impairment [Recovered/Resolved]
  - Ill-defined disorder [Unknown]
  - Blood thyroid stimulating hormone increased [Unknown]
  - Red cell distribution width increased [Unknown]
  - Poikilocytosis [Unknown]
  - Rouleaux formation [Unknown]
  - Coagulopathy [Unknown]
  - Abdominal discomfort [Unknown]
  - Feeling abnormal [Unknown]
  - Prothrombin level increased [Unknown]
  - Macrocytosis [Unknown]
  - Chest pain [Unknown]
  - Myopia [Unknown]
  - Limb injury [Unknown]
  - Nervousness [Unknown]
  - Dust allergy [Unknown]
  - Blood pressure increased [Unknown]
  - Emotional disorder [Unknown]
  - Decreased immune responsiveness [Unknown]
  - Diplopia [Unknown]
  - Anaemia [Unknown]
  - Red blood cell count decreased [Unknown]
  - Panic disorder [Unknown]
  - Sleep disorder [Unknown]
  - Fatigue [Unknown]
  - Haemoglobin decreased [Unknown]
  - Dizziness [Unknown]
  - Influenza [Unknown]
  - Neutrophil count decreased [Unknown]
  - Dysgeusia [Unknown]
  - Nausea [Unknown]
  - Blood creatinine increased [Unknown]
  - Cough [Unknown]
  - Tooth disorder [Unknown]
  - Gingival pain [Unknown]
  - Gingival disorder [Not Recovered/Not Resolved]
  - Hypersensitivity [Unknown]
  - Stress [Unknown]
  - Movement disorder [Unknown]
  - Irritability [Unknown]
  - Tooth fracture [Unknown]
  - Weight decreased [Unknown]
  - Diarrhoea [Unknown]
  - Headache [Unknown]
  - Vomiting [Unknown]
  - Pain in extremity [Unknown]
  - Muscle strain [Unknown]
  - Confusional state [Unknown]
  - Blood creatinine decreased [Unknown]
  - Bronchitis [Unknown]

NARRATIVE: CASE EVENT DATE: 20211213
